FAERS Safety Report 8564923-4 (Version None)
Quarter: 2012Q3

REPORT INFORMATION
  Report Type: 
  Country: None (occurrence: None)
  Receive Date: 20120803
  Receipt Date: 20120801
  Transmission Date: 20120928
  Serious: No
  Sender: FDA-Public Use
  Company Number: US-PFIZER INC-2012187191

PATIENT
  Sex: Female

DRUGS (2)
  1. LYRICA [Suspect]
     Indication: HERPES ZOSTER
     Dosage: 25 MG, 3X/DAY
     Route: 048
     Dates: start: 20120731, end: 20120801
  2. LYRICA [Suspect]
     Indication: BACK PAIN

REACTIONS (4)
  - DRUG INEFFECTIVE [None]
  - PAIN [None]
  - MALAISE [None]
  - FATIGUE [None]
